FAERS Safety Report 5300697-8 (Version None)
Quarter: 2007Q2

REPORT INFORMATION
  Report Type: 
  Country: None (occurrence: None)
  Receive Date: 20070418
  Receipt Date: 20070416
  Transmission Date: 20071010
  Serious: Yes (Disabling, Other)
  Sender: FDA-Public Use
  Company Number: US-MERCK-0702USA03612

PATIENT
  Age: 60 Year
  Sex: Female
  Weight: 55 kg

DRUGS (1)
  1. JANUVIA [Suspect]
     Indication: DIABETES MELLITUS
     Route: 048
     Dates: start: 20061202, end: 20070214

REACTIONS (4)
  - ARTHRALGIA [None]
  - CONSTIPATION [None]
  - HYPOAESTHESIA [None]
  - PAIN IN EXTREMITY [None]
